FAERS Safety Report 15879555 (Version 1)
Quarter: 2019Q1

REPORT INFORMATION
  Report Type: Spontaneous
  Country: US (occurrence: US)
  Receive Date: 20190127
  Receipt Date: 20190127
  Transmission Date: 20190417
  Serious: Yes (Other)
  Sender: FDA-Public Use
  Company Number: None

PATIENT
  Age: 52 Year
  Sex: Female
  Weight: 74.25 kg

DRUGS (9)
  1. TIZANDINE 8MG [Concomitant]
  2. VENLAFAXINE [Concomitant]
     Active Substance: VENLAFAXINE HYDROCHLORIDE
  3. BIOTIN PROBIOTICS 5,000 MCG [Concomitant]
  4. AIMOVIG [Suspect]
     Active Substance: ERENUMAB-AOOE
     Indication: MIGRAINE
     Dosage: ?          QUANTITY:1 INJECTION(S);OTHER FREQUENCY:MONTHLY;?
     Route: 030
     Dates: start: 20180721, end: 20181221
  5. ZONISAMIDE 300 MG [Concomitant]
  6. OSPHENA [Concomitant]
     Active Substance: OSPEMIFENE
  7. GABAPENTIN 900MG [Concomitant]
  8. LEVOTHYROXIN 100MCG [Concomitant]
  9. MAGNESIUM 400MG [Concomitant]
     Active Substance: MAGNESIUM

REACTIONS (13)
  - Contusion [None]
  - Oral mucosal blistering [None]
  - Impetigo [None]
  - Melanocytic naevus [None]
  - Tongue discolouration [None]
  - Alopecia [None]
  - Tongue coated [None]
  - Blister [None]
  - Anxiety [None]
  - Scab [None]
  - Blood blister [None]
  - Skin disorder [None]
  - Wound drainage [None]

NARRATIVE: CASE EVENT DATE: 20181115
